FAERS Safety Report 7016584-3 (Version None)
Quarter: 2010Q3

REPORT INFORMATION
  Report Type: 
  Country: None (occurrence: None)
  Receive Date: 20100927
  Receipt Date: 20100923
  Transmission Date: 20110219
  Serious: Yes (Death, Hospitalization)
  Sender: FDA-Public Use
  Company Number: A0883256A

PATIENT
  Age: 74 Year
  Sex: Male

DRUGS (2)
  1. AVANDIA [Suspect]
     Dosage: 2MG PER DAY
     Route: 048
     Dates: start: 20050527, end: 20051125
  2. AVANDAMET [Suspect]
     Route: 048
     Dates: start: 20030502, end: 20070502

REACTIONS (1)
  - MYOCARDIAL INFARCTION [None]
